FAERS Safety Report 11187104 (Version 1)
Quarter: 2015Q2

REPORT INFORMATION
  Report Type: Spontaneous
  Country: US (occurrence: US)
  Receive Date: 20150615
  Receipt Date: 20150615
  Transmission Date: 20150821
  Serious: No
  Sender: FDA-Public Use
  Company Number: US-JNJFOC-20150504248

PATIENT
  Sex: Male
  Weight: 104.33 kg

DRUGS (1)
  1. LEVAQUIN [Suspect]
     Active Substance: LEVOFLOXACIN
     Indication: BRONCHITIS
     Route: 048
     Dates: start: 201501, end: 201501

REACTIONS (5)
  - Dysgeusia [Not Recovered/Not Resolved]
  - Drug administration error [Recovered/Resolved]
  - Parosmia [Recovering/Resolving]
  - Drug dose omission [Recovered/Resolved]
  - Parosmia [Not Recovered/Not Resolved]

NARRATIVE: CASE EVENT DATE: 201501
